FAERS Safety Report 7979798-1 (Version None)
Quarter: 2011Q4

REPORT INFORMATION
  Report Type: 
  Country: None (occurrence: None)
  Receive Date: 20111214
  Receipt Date: 20111207
  Transmission Date: 20120403
  Serious: Yes (Death)
  Sender: FDA-Public Use
  Company Number: CN-ROCHE-1020586

PATIENT

DRUGS (4)
  1. ALTEPLASE [Suspect]
     Indication: ACUTE MYOCARDIAL INFARCTION
     Route: 040
  2. HEPARIN SODIUM [Concomitant]
     Indication: ACUTE MYOCARDIAL INFARCTION
  3. ASPIRIN [Concomitant]
  4. CLOPIDOGREL [Concomitant]
     Indication: ACUTE MYOCARDIAL INFARCTION

REACTIONS (2)
  - CARDIAC FAILURE [None]
  - PULMONARY INFARCTION [None]
